FAERS Safety Report 5320066-4 (Version None)
Quarter: 2007Q1

REPORT INFORMATION
  Report Type: 
  Country: None (occurrence: None)
  Receive Date: 20070216
  Receipt Date: 20060302
  Transmission Date: 20070707
  Serious: Yes (Other)
  Sender: FDA-Public Use
  Company Number: MC200600182

PATIENT
  Age: 40 Year
  Sex: Female

DRUGS (1)
  1. ANGIOMAX [Suspect]
     Dosage: SEE IMAGE
     Route: 040

REACTIONS (2)
  - CHEST DISCOMFORT [None]
  - THROMBOSIS [None]
